FAERS Safety Report 6461083-0 (Version None)
Quarter: 2009Q4

REPORT INFORMATION
  Report Type: 
  Country: None (occurrence: None)
  Receive Date: 20091130
  Receipt Date: 20091119
  Transmission Date: 20100525
  Serious: Yes (Other)
  Sender: FDA-Public Use
  Company Number: B0607481A

PATIENT
  Sex: Male

DRUGS (3)
  1. HYCAMTIN [Suspect]
     Indication: NEUROENDOCRINE CARCINOMA
     Dosage: 1.4MG CYCLIC
     Route: 042
     Dates: start: 20091119, end: 20091119
  2. CISPLATIN [Suspect]
     Indication: NEUROENDOCRINE CARCINOMA
     Dosage: 125MG CYCLIC
     Route: 042
     Dates: start: 20091119, end: 20091119
  3. ALIMTA [Suspect]
     Indication: NEUROENDOCRINE CARCINOMA
     Dosage: 850MG CYCLIC
     Route: 042
     Dates: start: 20091119, end: 20091119

REACTIONS (2)
  - INAPPROPRIATE SCHEDULE OF DRUG ADMINISTRATION [None]
  - MEDICATION ERROR [None]
